FAERS Safety Report 21346152 (Version 1)
Quarter: 2022Q3

REPORT INFORMATION
  Report Type: Spontaneous
  Country: CA (occurrence: CA)
  Receive Date: 20220917
  Receipt Date: 20220917
  Transmission Date: 20221026
  Serious: Yes (Other)
  Sender: FDA-Public Use
  Company Number: CA-CELLTRION INC.-2022CA007253

PATIENT

DRUGS (1)
  1. INFLECTRA [Suspect]
     Active Substance: INFLIXIMAB-DYYB
     Indication: Crohn^s disease
     Dosage: 555 MG, EVERY 8 WEEKS (NO INDUCTION PERIOD INDICATED)
     Route: 042

REACTIONS (6)
  - Tendonitis [Unknown]
  - Off label use [Unknown]
  - Intentional product use issue [Unknown]
  - Off label use [Unknown]
  - Migraine [Recovered/Resolved]
  - Impaired work ability [Unknown]

NARRATIVE: CASE EVENT DATE: 20220701
